FAERS Safety Report 8761027 (Version 1)
Quarter: 2012Q4

REPORT INFORMATION
  Report Type: 
  Country: US (occurrence: US)
  Receive Date: 20120830
  Receipt Date: 20120830
  Transmission Date: 20130627
  Serious: Yes (Other)
  Sender: FDA-Public Use
  Company Number: US-ROXANE LABORATORIES, INC.-2012-RO-01758RO

PATIENT
  Age: 50 Year
  Sex: Female

DRUGS (6)
  1. MORPHINE [Suspect]
     Dosage: 60 mg
  2. MS CONTIN [Suspect]
     Dosage: 60 mg
  3. AVINZA [Suspect]
     Dosage: 60 mg
  4. SKELAXIN [Suspect]
  5. FLEXERIL [Suspect]
  6. TRAMADOL [Suspect]
     Dosage: 600 mg

REACTIONS (3)
  - Loss of consciousness [Unknown]
  - Ankle fracture [Unknown]
  - Feeling abnormal [Unknown]
